FAERS Safety Report 10090080 (Version 2)
Quarter: 2014Q2

REPORT INFORMATION
  Report Type: Report from Study
  Country: US (occurrence: US)
  Receive Date: 20140421
  Receipt Date: 20140515
  Transmission Date: 20141212
  Serious: Yes (Death, Hospitalization)
  Sender: FDA-Public Use
  Company Number: US-ACTELION-A-NJ2014-97438

PATIENT
  Age: 78 Year
  Sex: Male

DRUGS (21)
  1. TRACLEER [Suspect]
     Indication: PULMONARY ARTERIAL HYPERTENSION
     Dosage: 125 MG, BID
     Route: 048
     Dates: end: 20140330
  2. COUMADIN [Concomitant]
     Dosage: 8 MG, QD
     Route: 048
  3. TYLENOL [Concomitant]
     Dosage: 650 MG, Q4HRS
     Route: 048
  4. NORCO [Concomitant]
     Dosage: 5/325, Q6HRS
     Route: 048
  5. METOPROLOL SUCCINATE [Concomitant]
     Dosage: 25 MG, BID
     Route: 048
  6. ISOSORBIDE MONONITE [Concomitant]
     Dosage: 30 MG, UNK
     Route: 048
  7. NITROGLYCERIN [Concomitant]
     Dosage: UNK, PRN
     Route: 060
  8. DILTIAZEM CD [Concomitant]
     Dosage: 180 MG, UNK
     Route: 048
  9. FERROUS SULFATE [Concomitant]
     Dosage: 28 MG, BID
     Route: 048
  10. FUROSEMIDE [Concomitant]
     Dosage: 40 MG, UNK
     Route: 048
  11. ALBUTEROL [Concomitant]
     Dosage: 2 PUFF, QID
  12. COMBIVENT [Concomitant]
     Dosage: 2 PUFF, QID
     Route: 055
  13. ASPIRIN [Concomitant]
     Dosage: 81 MG, UNK
     Route: 048
  14. CALCIUM ACETATE [Concomitant]
     Dosage: 667 MG, TID
     Route: 048
  15. CARVEDILOL [Concomitant]
     Dosage: 12.5 MG, BID
     Route: 048
  16. PLAVIX [Concomitant]
     Dosage: 75 MG, UNK
     Route: 048
  17. INSULIN NOVOLIN [Concomitant]
     Dosage: 30 U, BID
     Route: 058
  18. INSULIN REGULAR [Concomitant]
  19. ZEGERID [Concomitant]
     Route: 048
  20. RANEXA [Concomitant]
     Dosage: 500 MG, UNK
     Route: 048
  21. COLACE [Concomitant]
     Dosage: 100 MG, BID
     Route: 048

REACTIONS (10)
  - Chronic obstructive pulmonary disease [Fatal]
  - Osteomyelitis [Unknown]
  - Spinal fracture [Unknown]
  - Atrial fibrillation [Unknown]
  - Troponin I increased [Unknown]
  - Chest pain [Unknown]
  - Back pain [Unknown]
  - Malaise [Unknown]
  - Diastolic dysfunction [Unknown]
  - Mitral valve incompetence [Unknown]
